FAERS Safety Report 4417293-7 (Version None)
Quarter: 2004Q3

REPORT INFORMATION
  Report Type: 
  Country: None (occurrence: None)
  Receive Date: 20040802
  Receipt Date: 20040720
  Transmission Date: 20050211
  Serious: Yes (Hospitalization, Other)
  Sender: FDA-Public Use
  Company Number: 2004049295

PATIENT
  Sex: Female
  Weight: 52.1637 kg

DRUGS (14)
  1. GEODON [Suspect]
     Indication: AFFECTIVE DISORDER
     Dosage: 40 MG (20 MG, 2 IN 1D), ORAL
     Route: 048
     Dates: start: 20031123
  2. DONEPEZIL HCL [Suspect]
     Indication: AMNESIA
  3. PROPACET (DEXTROPROPOXYPHENE NAPSILATE, PARACETAMOL) [Suspect]
     Indication: SLEEP DISORDER
  4. RISEDRONATE SODIUM (RISEDRONATE SODIUM) [Concomitant]
  5. LEVOTHYROXINE SODIUM [Concomitant]
  6. OLMESARTAN MEDOXOMIL (OLMESARTAN MEDOXOMIL) [Concomitant]
  7. BISOPROLOL FUMARATE [Concomitant]
  8. CELECOXIB (CELECOXIB) [Concomitant]
  9. LOTREL [Concomitant]
  10. K-DROPPAR (CYCLOPENTOLATE, EPINEPHRINE, TROPICAMIDE) [Concomitant]
  11. CALCIUM CARBONATE (CALCIUM CARBONATE) [Concomitant]
  12. DONEPEZIL HCL [Concomitant]
  13. ALPRAZOLAM [Concomitant]
  14. ESCITALOPRAM (ESCITALOPRAM) [Concomitant]

REACTIONS (18)
  - BACK PAIN [None]
  - BLOOD URINE [None]
  - COORDINATION ABNORMAL [None]
  - DIARRHOEA [None]
  - DROOLING [None]
  - DYSARTHRIA [None]
  - DYSKINESIA [None]
  - DYSPNOEA [None]
  - FATIGUE [None]
  - GAIT DISTURBANCE [None]
  - HAEMORRHAGE [None]
  - HOSTILITY [None]
  - HYPERAESTHESIA [None]
  - NAUSEA [None]
  - SKIN DISORDER [None]
  - SLEEP DISORDER [None]
  - TREMOR [None]
  - UPPER RESPIRATORY TRACT INFECTION [None]
